FAERS Safety Report 6803874-X (Version None)
Quarter: 2010Q2

REPORT INFORMATION
  Report Type: 
  Country: None (occurrence: None)
  Receive Date: 20100628
  Receipt Date: 20100618
  Transmission Date: 20101027
  Serious: Yes (Other)
  Sender: FDA-Public Use
  Company Number: CA-ABBOTT-10P-028-0652694-00

PATIENT
  Sex: Male

DRUGS (9)
  1. HUMIRA [Suspect]
     Indication: PSORIASIS
     Route: 058
  2. COVERSYL [Concomitant]
     Indication: ARTERIOSCLEROSIS
     Route: 048
  3. CRESTOR [Concomitant]
     Indication: ARTERIOSCLEROSIS
     Route: 048
  4. METFORMIN HCL [Concomitant]
     Indication: BLOOD GLUCOSE ABNORMAL
     Route: 048
  5. NOVO-LORAZEPAM [Concomitant]
     Indication: DRUG USE FOR UNKNOWN INDICATION
     Route: 048
  6. NOVAMILOR [Concomitant]
     Indication: BLOOD PRESSURE
     Dosage: 5-50 MG
     Route: 048
  7. ACETAMINOPHEN [Concomitant]
     Indication: PAIN
     Route: 048
  8. TYLENOL W/ CODEINE NO. 3 [Concomitant]
     Indication: PAIN
     Route: 048
  9. PREVACID [Concomitant]
     Indication: DYSPEPSIA

REACTIONS (5)
  - CEREBROVASCULAR ACCIDENT [None]
  - FATIGUE [None]
  - MUSCULAR WEAKNESS [None]
  - PSORIASIS [None]
  - SPEECH DISORDER [None]
